FAERS Safety Report 4597528-0 (Version None)
Quarter: 2005Q1

REPORT INFORMATION
  Report Type: 
  Country: None (occurrence: None)
  Receive Date: 20050228
  Receipt Date: 20050228
  Transmission Date: 20050727
  Serious: No
  Sender: FDA-Public Use
  Company Number: None

PATIENT
  Age: 70 Year
  Sex: Male
  Weight: 76 kg

DRUGS (1)
  1. FELODIPINE 10 MG ASTRA ZENECA [Suspect]
     Indication: HYPERTENSION
     Dosage: 10 MG PO HS
     Route: 048
     Dates: start: 20040718, end: 20050106

REACTIONS (5)
  - AZOTAEMIA [None]
  - DEHYDRATION [None]
  - HYPONATRAEMIA [None]
  - HYPOTENSION [None]
  - SEPSIS [None]
